FAERS Safety Report 9569573 (Version 1)
Quarter: 2013Q3

REPORT INFORMATION
  Report Type: Spontaneous
  Country: US (occurrence: US)
  Receive Date: 20130930
  Receipt Date: 20130930
  Transmission Date: 20140515
  Serious: Yes (Other)
  Sender: FDA-Public Use
  Company Number: US-AMGEN-USASP2013066493

PATIENT
  Age: 38 Year
  Sex: Female

DRUGS (2)
  1. ENBREL [Suspect]
     Indication: RHEUMATOID ARTHRITIS
     Dosage: 50 MG, QWK
     Route: 065
     Dates: start: 20100928
  2. ENBREL [Suspect]

REACTIONS (7)
  - Cutaneous lupus erythematosus [Not Recovered/Not Resolved]
  - Arthralgia [Recovered/Resolved]
  - Nerve injury [Not Recovered/Not Resolved]
  - Alopecia [Unknown]
  - Pain [Not Recovered/Not Resolved]
  - Limb deformity [Unknown]
  - Activities of daily living impaired [Unknown]
